FAERS Safety Report 5862445-2 (Version None)
Quarter: 2008Q3

REPORT INFORMATION
  Report Type: 
  Country: None (occurrence: None)
  Receive Date: 20080827
  Receipt Date: 20080827
  Transmission Date: 20090109
  Serious: Yes (Hospitalization)
  Sender: FDA-Public Use
  Company Number: None

PATIENT
  Age: 46 Year
  Sex: Male
  Weight: 121.6 kg

DRUGS (2)
  1. VANCOMYCIN HYDROCHLORIDE [Suspect]
     Indication: PNEUMONIA
     Dosage: 1000 MG BID IV
     Route: 042
     Dates: start: 20080721, end: 20080726
  2. IBUPROFEN [Suspect]
     Indication: INFLAMMATION
     Dosage: 600 MG PRN PO
     Route: 048
     Dates: start: 20080722, end: 20080725

REACTIONS (4)
  - HAEMODIALYSIS [None]
  - HYPOTENSION [None]
  - RENAL FAILURE ACUTE [None]
  - SEPSIS [None]
